FAERS Safety Report 10450190 (Version 1)
Quarter: 2014Q3

REPORT INFORMATION
  Report Type: Spontaneous
  Country: US (occurrence: US)
  Receive Date: 20140912
  Receipt Date: 20140912
  Transmission Date: 20150326
  Serious: No
  Sender: FDA-Public Use
  Company Number: US-PFIZER INC-2014251480

PATIENT
  Age: 47 Year
  Sex: Female
  Weight: 115 kg

DRUGS (6)
  1. SYNTHROID [Concomitant]
     Active Substance: LEVOTHYROXINE SODIUM
     Indication: THYROID DISORDER
     Dosage: 137 UG, DAILY
  2. MELOXICAM. [Concomitant]
     Active Substance: MELOXICAM
     Indication: MUSCLE DISORDER
     Dosage: 15 MG, DAILY
  3. LIOTHYRONINE [Concomitant]
     Active Substance: LIOTHYRONINE
     Indication: THYROID DISORDER
     Dosage: 5 UG, 1X/DAY
  4. LYRICA [Suspect]
     Active Substance: PREGABALIN
     Indication: FIBROMYALGIA
     Dosage: 100 MG, 3X/DAY
     Dates: start: 201408
  5. MELOXICAM. [Concomitant]
     Active Substance: MELOXICAM
     Indication: MOVEMENT DISORDER
  6. METOPROLOL [Concomitant]
     Active Substance: METOPROLOL
     Indication: BLOOD PRESSURE
     Dosage: 50 MG, DAILY

REACTIONS (1)
  - Abnormal weight gain [Recovering/Resolving]

NARRATIVE: CASE EVENT DATE: 2014
